FAERS Safety Report 25116480 (Version 2)
Quarter: 2025Q2

REPORT INFORMATION
  Report Type: Spontaneous
  Country: RU (occurrence: RU)
  Receive Date: 20250325
  Receipt Date: 20250515
  Transmission Date: 20250717
  Serious: Yes (Hospitalization, Other)
  Sender: SANOFI AVENTIS
  Company Number: RU-SA-2025SA083058

PATIENT
  Age: 37 Year
  Sex: Female
  Weight: 53 kg

DRUGS (2)
  1. LEMTRADA [Suspect]
     Active Substance: ALEMTUZUMAB
     Indication: Multiple sclerosis
     Route: 041
     Dates: start: 202106, end: 2021
  2. LEMTRADA [Suspect]
     Active Substance: ALEMTUZUMAB
     Route: 041
     Dates: start: 2022, end: 202206

REACTIONS (4)
  - Graves^ disease [Unknown]
  - Eye disorder [Recovered/Resolved]
  - Eyelid function disorder [Recovered/Resolved]
  - Blood thyroid stimulating hormone increased [Unknown]

NARRATIVE: CASE EVENT DATE: 20241101
